FAERS Safety Report 17537672 (Version 1)
Quarter: 2020Q1

REPORT INFORMATION
  Report Type: Spontaneous
  Country: US (occurrence: US)
  Receive Date: 20200313
  Receipt Date: 20200313
  Transmission Date: 20200409
  Serious: Yes (Other)
  Sender: FDA-Public Use
  Company Number: US-FRESENIUS KABI-FK202002482

PATIENT
  Age: 79 Year
  Sex: Female
  Weight: 82.6 kg

DRUGS (5)
  1. HEPARIN SODIUM INJECTION, USP [Suspect]
     Active Substance: HEPARIN SODIUM
     Dosage: 4000 UNITS (50.44 U PER KG) AT 1944 (IN PROCEDURAL ROOM)
     Dates: start: 20200214, end: 20200214
  2. HEPARIN SODIUM INJECTION, USP [Suspect]
     Active Substance: HEPARIN SODIUM
     Dosage: 3000 UNITS (37.8 U PER KG) AT 2001
     Dates: start: 20200214, end: 20200214
  3. HEPARIN SODIUM INJECTION, USP [Suspect]
     Active Substance: HEPARIN SODIUM
     Dosage: 3000 UNITS (37.8 U PER KG) AT 2018
     Dates: start: 20200214, end: 20200214
  4. HEPARIN SODIUM INJECTION, USP [Suspect]
     Active Substance: HEPARIN SODIUM
     Dosage: 5000 UNITS (63 U PER KG) AT 2110 (DURING SECOND PROCEDURE)
     Dates: start: 20200214, end: 20200214
  5. HEPARIN SODIUM INJECTION, USP [Suspect]
     Active Substance: HEPARIN SODIUM
     Indication: ANTICOAGULANT THERAPY
     Dosage: 4000 UNITS (50.44 U PER KG) AT 1906 (BEFORE PROCEDURE)
     Dates: start: 20200214, end: 20200214

REACTIONS (2)
  - Therapeutic product effect decreased [Unknown]
  - Vascular stent thrombosis [Unknown]

NARRATIVE: CASE EVENT DATE: 20200214
